FAERS Safety Report 20435916 (Version 1)
Quarter: 2022Q1

REPORT INFORMATION
  Report Type: Report from Study
  Country: US (occurrence: US)
  Receive Date: 20220207
  Receipt Date: 20220207
  Transmission Date: 20220424
  Serious: No
  Sender: FDA-Public Use
  Company Number: US-ACADIA PHARMACEUTICALS INC.-ACA-2022-PIM-000172

PATIENT
  Age: 79 Year
  Sex: Male

DRUGS (8)
  1. NUPLAZID [Suspect]
     Active Substance: PIMAVANSERIN TARTRATE
     Indication: Hallucination
     Dosage: 34 MILLIGRAM, QD
     Route: 048
     Dates: start: 20211007
  2. NUPLAZID [Suspect]
     Active Substance: PIMAVANSERIN TARTRATE
     Indication: Parkinson^s disease
     Dosage: 34 MILLIGRAM EVERY OTHER DAY
     Route: 048
  3. NUPLAZID [Suspect]
     Active Substance: PIMAVANSERIN TARTRATE
     Dosage: 34 MILLIGRAM EVERY TWO DAYS
     Route: 048
     Dates: end: 20220113
  4. MOXIFLOXACIN [Concomitant]
     Active Substance: MOXIFLOXACIN
  5. PREDNISOLONE [Concomitant]
     Active Substance: PREDNISOLONE
  6. IBUPROFEN [Concomitant]
     Active Substance: IBUPROFEN
  7. GABAPENTIN [Concomitant]
     Active Substance: GABAPENTIN
  8. VITAMIN D2 [Concomitant]
     Active Substance: ERGOCALCIFEROL

REACTIONS (2)
  - Inappropriate schedule of product administration [Recovered/Resolved]
  - Hallucination [Recovered/Resolved]

NARRATIVE: CASE EVENT DATE: 20220101
